FAERS Safety Report 9107681 (Version 1)
Quarter: 2013Q1

REPORT INFORMATION
  Report Type: Spontaneous
  Country: US (occurrence: US)
  Receive Date: 20130222
  Receipt Date: 20130222
  Transmission Date: 20140127
  Serious: No
  Sender: FDA-Public Use
  Company Number: US-TEVA-350466USA

PATIENT
  Sex: 0

DRUGS (3)
  1. TREANDA [Suspect]
     Route: 042
  2. RITUXIMAB [Concomitant]
  3. ALLOPURINOL [Concomitant]

REACTIONS (1)
  - Rash [Recovered/Resolved]
